FAERS Safety Report 7202212-0 (Version None)
Quarter: 2010Q4

REPORT INFORMATION
  Report Type: 
  Country: None (occurrence: None)
  Receive Date: 20101229
  Receipt Date: 20101222
  Transmission Date: 20110411
  Serious: Yes (Life-Threatening, Other)
  Sender: FDA-Public Use
  Company Number: JP-PFIZER INC-2010135500

PATIENT
  Age: 74 Year
  Sex: Female
  Weight: 40.6 kg

DRUGS (7)
  1. ZYVOX [Suspect]
     Indication: STAPHYLOCOCCAL INFECTION
     Dosage: 600 MG, 2X/DAY
     Route: 048
     Dates: start: 20100830, end: 20101021
  2. ZYVOX [Suspect]
     Indication: ENTEROCOCCAL INFECTION
  3. EC DOPARL [Concomitant]
     Indication: PARKINSON'S DISEASE
     Dosage: 1 DF, 3X/DAY
     Route: 048
  4. PRAMIPEXOLE DIHYDROCHLORIDE [Concomitant]
     Indication: PARKINSON'S DISEASE
     Route: 048
  5. ARICEPT [Concomitant]
     Dosage: 5 MG, 1X/DAY
     Route: 048
  6. VFEND [Concomitant]
     Dosage: 200 MG, 2X/DAY
     Route: 048
     Dates: end: 20100929
  7. FLAGYL [Concomitant]
     Indication: CLOSTRIDIUM DIFFICILE COLITIS
     Dosage: 250 MG, 4X/DAY
     Route: 048
     Dates: end: 20101001

REACTIONS (2)
  - HEPATIC ENZYME INCREASED [None]
  - LACTIC ACIDOSIS [None]
